FAERS Safety Report 25173829 (Version 1)
Quarter: 2025Q2

REPORT INFORMATION
  Report Type: Report from Study
  Country: CA (occurrence: CA)
  Receive Date: 20250408
  Receipt Date: 20250408
  Transmission Date: 20250717
  Serious: Yes (Other)
  Sender: TAKEDA
  Company Number: CA-TAKEDA-2024TUS065594

PATIENT
  Sex: Female

DRUGS (12)
  1. VEDOLIZUMAB [Suspect]
     Active Substance: VEDOLIZUMAB
     Indication: Crohn^s disease
  2. VEDOLIZUMAB [Suspect]
     Active Substance: VEDOLIZUMAB
  3. TAMOXIFEN CITRATE [Concomitant]
     Active Substance: TAMOXIFEN CITRATE
  4. PANTOPRAZOLE [Concomitant]
     Active Substance: PANTOPRAZOLE
  5. TELMISARTAN AND HYDROCHLOROTHIAZIDE [Concomitant]
     Active Substance: HYDROCHLOROTHIAZIDE\TELMISARTAN
  6. ATORVASTATIN [Concomitant]
     Active Substance: ATORVASTATIN
  7. ASPIRIN [Concomitant]
     Active Substance: ASPIRIN
  8. DOMPERIDONE [Concomitant]
     Active Substance: DOMPERIDONE
  9. FERROUS SULFATE [Concomitant]
     Active Substance: FERROUS SULFATE
  10. ASPIRIN [Concomitant]
     Active Substance: ASPIRIN
  11. FERROUS SULFATE [Concomitant]
     Active Substance: FERROUS SULFATE
  12. ENTOCORT [Concomitant]
     Active Substance: BUDESONIDE
     Dates: start: 20231110, end: 20231221

REACTIONS (2)
  - Pneumonia [Recovered/Resolved]
  - Cough [Recovering/Resolving]
